FAERS Safety Report 5907676-8 (Version None)
Quarter: 2008Q4

REPORT INFORMATION
  Report Type: 
  Country: None (occurrence: None)
  Receive Date: 20081003
  Receipt Date: 19971124
  Transmission Date: 20090506
  Serious: Yes (Death, Life-Threatening, Hospitalization)
  Sender: FDA-Public Use
  Company Number: US-ROCHE-90978

PATIENT
  Age: 30 Year
  Sex: Female

DRUGS (3)
  1. VESANOID [Suspect]
     Route: 048
     Dates: start: 19971118, end: 19971118
  2. VESANOID [Suspect]
     Dosage: GIVEN TDD OF 70M, DIVIDED INTO DOSES OF 30MG AND 40MG.
     Route: 048
     Dates: start: 19971119, end: 19971120
  3. VESANOID [Suspect]
     Dosage: ADMINISTERED BY LIPOSOMAL ROUTE (IV) APPROVED BY COMPASSIONATE CASES BY THE FDA.
     Route: 042
     Dates: start: 19971121, end: 19971122

REACTIONS (4)
  - DEATH [None]
  - DISSEMINATED INTRAVASCULAR COAGULATION [None]
  - MULTI-ORGAN FAILURE [None]
  - PULMONARY HAEMORRHAGE [None]
